FAERS Safety Report 20937243 (Version 2)
Quarter: 2022Q2

REPORT INFORMATION
  Report Type: Spontaneous
  Country: US (occurrence: US)
  Receive Date: 20220609
  Receipt Date: 20220615
  Transmission Date: 20220720
  Serious: Yes (Life-Threatening, Hospitalization, Other)
  Sender: FDA-Public Use
  Company Number: US-ABBVIE-22K-163-4427289-00

PATIENT
  Sex: Female
  Weight: 86.260 kg

DRUGS (1)
  1. LUPRON DEPOT [Suspect]
     Active Substance: LEUPROLIDE ACETATE
     Indication: Endometriosis
     Route: 030
     Dates: start: 2011, end: 2011

REACTIONS (12)
  - Osteopenia [Unknown]
  - Ovarian dysfunction [Unknown]
  - Ankle fracture [Recovered/Resolved]
  - Pelvic adhesions [Not Recovered/Not Resolved]
  - Rheumatoid arthritis [Not Recovered/Not Resolved]
  - Adhesion [Unknown]
  - Fall [Unknown]
  - Osteoporosis [Not Recovered/Not Resolved]
  - Bone pain [Unknown]
  - Toxicity to various agents [Unknown]
  - Menstrual disorder [Unknown]
  - Myalgia [Unknown]

NARRATIVE: CASE EVENT DATE: 20110101
